FAERS Safety Report 17432641 (Version 3)
Quarter: 2020Q1

REPORT INFORMATION
  Report Type: Report from Study
  Country: None (occurrence: FI)
  Receive Date: 20200218
  Receipt Date: 20200330
  Transmission Date: 20200409
  Serious: Yes (Hospitalization)
  Sender: FDA-Public Use
  Company Number: FI-ABBVIE-20K-055-3276048-00

PATIENT
  Age: 69 Year
  Sex: Female
  Weight: 58 kg

DRUGS (8)
  1. EMCONCOR [Concomitant]
     Active Substance: BISOPROLOL FUMARATE
     Indication: HYPERTENSION
     Dosage: IN THE MORNINGS
  2. PANADOL [Concomitant]
     Active Substance: ACETAMINOPHEN
     Indication: ARTHRALGIA
     Dosage: WHEN NECESSARY
  3. BURANA [Concomitant]
     Active Substance: IBUPROFEN
     Indication: ARTHRALGIA
     Dosage: WHEN NECESSARY
  4. DUODOPA [Suspect]
     Active Substance: CARBIDOPA\LEVODOPA
     Indication: PARKINSON^S DISEASE
     Dosage: MD 3.5 ML; AT NIGHT 2.3 ML; ED 1.0; 24 H TREATMENT
     Route: 050
     Dates: start: 20160127
  5. LOSATRIX [Concomitant]
     Active Substance: LOSARTAN POTASSIUM
     Indication: HYPERTENSION
     Dosage: IN THE MORNINGS
  6. VITAMIN B12 [Concomitant]
     Active Substance: CYANOCOBALAMIN
     Indication: PRODUCT USED FOR UNKNOWN INDICATION
  7. EMCONCOR [Concomitant]
     Active Substance: BISOPROLOL FUMARATE
     Indication: ARRHYTHMIA
  8. LOSATRIX [Concomitant]
     Active Substance: LOSARTAN POTASSIUM
     Indication: ARRHYTHMIA

REACTIONS (10)
  - Abdominal pain [Recovered/Resolved]
  - Stoma site pain [Not Recovered/Not Resolved]
  - Upper limb fracture [Unknown]
  - Device alarm issue [Unknown]
  - Fall [Unknown]
  - Decreased appetite [Unknown]
  - Tremor [Recovering/Resolving]
  - Medical device site pain [Recovering/Resolving]
  - Pain of skin [Recovered/Resolved]
  - Weight decreased [Recovering/Resolving]

NARRATIVE: CASE EVENT DATE: 2017
